FAERS Safety Report 23797564 (Version 1)
Quarter: 2024Q2

REPORT INFORMATION
  Report Type: Spontaneous
  Country: IT (occurrence: None)
  Receive Date: 20240430
  Receipt Date: 20240430
  Transmission Date: 20240716
  Serious: Yes (Death)
  Sender: FDA-Public Use
  Company Number: IT-SUPERNUS Pharmaceuticals, Inc.-SUP202404-001419

PATIENT
  Age: 48 Year
  Sex: Male
  Weight: 73 kg

DRUGS (4)
  1. OXCARBAZEPINE [Suspect]
     Active Substance: OXCARBAZEPINE
     Indication: Epilepsy
  2. CLOZAPINE [Concomitant]
     Active Substance: CLOZAPINE
  3. DELORAZEPAM [Concomitant]
     Active Substance: DELORAZEPAM
  4. ATENOLOL [Concomitant]
     Active Substance: ATENOLOL

REACTIONS (3)
  - Dysphagia [Fatal]
  - Choking [Fatal]
  - Asphyxia [Fatal]
